FAERS Safety Report 5324359-6 (Version None)
Quarter: 2007Q2

REPORT INFORMATION
  Report Type: 
  Country: None (occurrence: None)
  Receive Date: 20070514
  Receipt Date: 20070504
  Transmission Date: 20071010
  Serious: Yes (Other)
  Sender: FDA-Public Use
  Company Number: BE-ABBOTT-07P-013-0363882-00

PATIENT
  Sex: Male

DRUGS (4)
  1. HUMIRA [Suspect]
     Indication: ANKYLOSING SPONDYLITIS
     Route: 058
     Dates: start: 20060821, end: 20070324
  2. MONOTHERAPY [Concomitant]
     Indication: ANKYLOSING SPONDYLITIS
  3. PIROXICAM [Concomitant]
     Indication: ANKYLOSING SPONDYLITIS
  4. INFLIXIMAB [Concomitant]
     Indication: ANKYLOSING SPONDYLITIS
     Dates: start: 20020101

REACTIONS (2)
  - CHOLECYSTITIS [None]
  - HEPATIC STEATOSIS [None]
